FAERS Safety Report 4779011-2 (Version None)
Quarter: 2005Q3

REPORT INFORMATION
  Report Type: 
  Country: None (occurrence: None)
  Receive Date: 20050914
  Receipt Date: 20050525
  Transmission Date: 20060218
  Serious: Yes (Other)
  Sender: FDA-Public Use
  Company Number: 405848

PATIENT
  Age: 82 Year
  Sex: Female
  Weight: 44 kg

DRUGS (1)
  1. BONIVA [Suspect]
     Indication: OSTEOPOROSIS
     Dosage: 150 MG 1 PER 1 MONTH ORAL
     Route: 048
     Dates: start: 20050519

REACTIONS (1)
  - RASH [None]
